FAERS Safety Report 8926345 (Version 5)
Quarter: 2021Q3

REPORT INFORMATION
  Report Type: Spontaneous
  Country: GB (occurrence: JP)
  Receive Date: 20121127
  Receipt Date: 20210825
  Transmission Date: 20211014
  Serious: Yes (Death, Hospitalization, Other)
  Sender: FDA-Public Use
  Company Number: JP-ASTELLAS-2012US011408

PATIENT
  Age: 71 Year
  Sex: Female
  Weight: 37 kg

DRUGS (29)
  1. DEXART [Concomitant]
     Active Substance: DEXAMETHASONE SODIUM PHOSPHATE
     Indication: PRODUCT USED FOR UNKNOWN INDICATION
     Route: 065
     Dates: start: 20120731, end: 20120823
  2. GASTER [Concomitant]
     Active Substance: FAMOTIDINE
     Route: 048
     Dates: start: 20120903, end: 20121002
  3. LAC?B [Concomitant]
     Active Substance: BIFIDOBACTERIUM SPP.
     Indication: PRODUCT USED FOR UNKNOWN INDICATION
     Route: 048
     Dates: start: 20120731, end: 20120823
  4. PYDOXAL [Concomitant]
     Active Substance: PYRIDOXAL
     Indication: PRODUCT USED FOR UNKNOWN INDICATION
     Dosage: UNK UNK, UNKNOWN FREQ.
     Route: 065
  5. TARCEVA [Suspect]
     Active Substance: ERLOTINIB HYDROCHLORIDE
     Indication: LUNG ADENOCARCINOMA
     Dosage: 150 MG, ONCE DAILY,STOMACH TUBE
     Route: 048
     Dates: start: 20120731, end: 20120823
  6. TARCEVA [Suspect]
     Active Substance: ERLOTINIB HYDROCHLORIDE
     Dosage: 150 MG, ONCE DAILY,STOMACH TUBE
     Route: 048
     Dates: start: 20120904, end: 20121002
  7. METABOLIN G [Concomitant]
     Indication: PRODUCT USED FOR UNKNOWN INDICATION
     Route: 065
     Dates: start: 20120731, end: 20120823
  8. VITAMINS NOS [Concomitant]
     Active Substance: VITAMINS
     Indication: PRODUCT USED FOR UNKNOWN INDICATION
     Route: 065
     Dates: start: 20120731, end: 20120823
  9. TANNALBIN [Concomitant]
     Active Substance: ALBUMIN TANNATE
     Indication: PRODUCT USED FOR UNKNOWN INDICATION
     Route: 065
     Dates: start: 20120731, end: 20120823
  10. DIGOSIN [Concomitant]
     Active Substance: DIGOXIN
     Indication: PRODUCT USED FOR UNKNOWN INDICATION
     Dosage: UNK UNK, UNKNOWN FREQ.
     Route: 065
  11. POTASSIUM CHLORIDE. [Concomitant]
     Active Substance: POTASSIUM CHLORIDE
     Route: 065
     Dates: start: 20120903, end: 20121002
  12. METHYCOBAL [Concomitant]
     Active Substance: METHYLCOBALAMIN
     Route: 065
     Dates: start: 20120903, end: 20121002
  13. GASTER [Concomitant]
     Active Substance: FAMOTIDINE
     Indication: PRODUCT USED FOR UNKNOWN INDICATION
     Route: 048
     Dates: start: 20120731, end: 20120823
  14. ADSORBIN [Concomitant]
     Active Substance: ALUMINUM SILICATE
     Indication: PRODUCT USED FOR UNKNOWN INDICATION
     Route: 065
     Dates: start: 20120731, end: 20120823
  15. VITAMINS NOS [Concomitant]
     Active Substance: VITAMINS
     Route: 065
     Dates: start: 20120903, end: 20121002
  16. METABOLIN G [Concomitant]
     Route: 065
     Dates: start: 20120903, end: 20121002
  17. LENDORMIN [Concomitant]
     Active Substance: BROTIZOLAM
     Indication: PRODUCT USED FOR UNKNOWN INDICATION
     Dosage: 0.25 MG, ONCE DAILY
     Route: 048
     Dates: start: 20120731, end: 20120823
  18. CALONAL [Concomitant]
     Active Substance: ACETAMINOPHEN
     Indication: PRODUCT USED FOR UNKNOWN INDICATION
     Route: 048
     Dates: start: 20120903, end: 20121002
  19. GLYCEOL [Concomitant]
     Active Substance: GLYCERIN
     Indication: PRODUCT USED FOR UNKNOWN INDICATION
     Dosage: UNK UNK, UNKNOWN FREQ.
     Route: 065
  20. HEPARIN SODIUM. [Concomitant]
     Active Substance: HEPARIN SODIUM
     Indication: PRODUCT USED FOR UNKNOWN INDICATION
     Dosage: 1 DF, ONCE DAILY(1 MU/10ML 1 V)
     Route: 065
     Dates: start: 20120731, end: 20120823
  21. POTASSIUM CHLORIDE. [Concomitant]
     Active Substance: POTASSIUM CHLORIDE
     Indication: PRODUCT USED FOR UNKNOWN INDICATION
     Route: 065
     Dates: start: 20120731, end: 20120823
  22. LAC?B [Concomitant]
     Active Substance: BIFIDOBACTERIUM SPP.
     Route: 048
     Dates: start: 20120903, end: 20121002
  23. BISOLVON [Concomitant]
     Active Substance: BROMHEXINE HYDROCHLORIDE
     Indication: PRODUCT USED FOR UNKNOWN INDICATION
     Dosage: UNK, UNKNOWN FREQ.
     Route: 065
  24. LOPEMIN [Concomitant]
     Indication: PRODUCT USED FOR UNKNOWN INDICATION
     Dosage: UNK UNK, UNKNOWN FREQ.
     Route: 065
  25. HEPARIN SODIUM. [Concomitant]
     Active Substance: HEPARIN SODIUM
     Dosage: 1 DF, ONCE DAILY(1 MU/10ML 1 V)
     Route: 065
     Dates: start: 20120903, end: 20121002
  26. VITACIMIN [Concomitant]
     Route: 065
     Dates: start: 20120903, end: 20121002
  27. VITACIMIN [Concomitant]
     Indication: PRODUCT USED FOR UNKNOWN INDICATION
     Route: 065
     Dates: start: 20120731, end: 20120823
  28. METHYCOBAL [Concomitant]
     Active Substance: METHYLCOBALAMIN
     Indication: PRODUCT USED FOR UNKNOWN INDICATION
     Route: 065
     Dates: start: 20120731, end: 20120823
  29. URSO [Concomitant]
     Active Substance: URSODIOL
     Indication: PRODUCT USED FOR UNKNOWN INDICATION
     Dosage: UNK, UNKNOWN FREQ.
     Route: 065

REACTIONS (6)
  - Gastrointestinal necrosis [Unknown]
  - Pneumoretroperitoneum [Recovered/Resolved]
  - Pneumomediastinum [Recovered/Resolved]
  - Diarrhoea [Recovered/Resolved]
  - Lung adenocarcinoma [Fatal]
  - Pneumatosis intestinalis [Recovered/Resolved]

NARRATIVE: CASE EVENT DATE: 20120824
